FAERS Safety Report 20535060 (Version 1)
Quarter: 2022Q1

REPORT INFORMATION
  Report Type: Spontaneous
  Country: FR (occurrence: FR)
  Receive Date: 20220302
  Receipt Date: 20220302
  Transmission Date: 20220423
  Serious: Yes (Other)
  Sender: FDA-Public Use
  Company Number: None

PATIENT
  Age: 70 Year
  Sex: Male

DRUGS (3)
  1. DOXYCYCLINE [Suspect]
     Active Substance: DOXYCYCLINE
     Indication: Dermatitis acneiform
     Dosage: 100MG
     Route: 065
     Dates: start: 202103, end: 20210927
  2. TAFINLAR [Suspect]
     Active Substance: DABRAFENIB MESYLATE
     Indication: Metastatic malignant melanoma
     Route: 065
     Dates: start: 20191107, end: 20210813
  3. MEKINIST [Suspect]
     Active Substance: TRAMETINIB DIMETHYL SULFOXIDE
     Indication: Metastatic malignant melanoma
     Route: 065
     Dates: start: 20191107, end: 20210818

REACTIONS (1)
  - Cholangitis [Not Recovered/Not Resolved]

NARRATIVE: CASE EVENT DATE: 20210601
